FAERS Safety Report 4436721-4 (Version None)
Quarter: 2004Q3

REPORT INFORMATION
  Report Type: 
  Country: None (occurrence: None)
  Receive Date: 20040726
  Receipt Date: 20040305
  Transmission Date: 20050211
  Serious: No
  Sender: FDA-Public Use
  Company Number: USA040361128

PATIENT
  Age: 50 Year
  Sex: Female
  Weight: 73 kg

DRUGS (2)
  1. FORTEO [Suspect]
     Indication: OSTEOPOROSIS
     Dates: start: 20030301
  2. VERAPAMIL [Concomitant]

REACTIONS (3)
  - ALOPECIA [None]
  - HAIR TEXTURE ABNORMAL [None]
  - TRICHORRHEXIS [None]
